FAERS Safety Report 6479956-1 (Version None)
Quarter: 2009Q4

REPORT INFORMATION
  Report Type: 
  Country: None (occurrence: None)
  Receive Date: 20091208
  Receipt Date: 20091124
  Transmission Date: 20100525
  Serious: Yes (Death, Hospitalization)
  Sender: FDA-Public Use
  Company Number: GB-SANOFI-AVENTIS-2009SA003562

PATIENT
  Age: 64 Year
  Sex: Male

DRUGS (4)
  1. OXALIPLATIN [Suspect]
     Indication: COLORECTAL CANCER
     Route: 065
     Dates: start: 20090701, end: 20090701
  2. OXALIPLATIN [Suspect]
     Route: 065
     Dates: start: 20090801, end: 20090801
  3. CAPECITABINE [Suspect]
     Indication: COLORECTAL CANCER
     Route: 065
     Dates: start: 20090701, end: 20090701
  4. CAPECITABINE [Suspect]
     Route: 065
     Dates: start: 20090801, end: 20090801

REACTIONS (2)
  - DEATH [None]
  - MALAISE [None]
